FAERS Safety Report 7451238-0 (Version None)
Quarter: 2011Q2

REPORT INFORMATION
  Report Type: 
  Country: None (occurrence: None)
  Receive Date: 20110502
  Receipt Date: 20110419
  Transmission Date: 20111010
  Serious: Yes (Hospitalization, Other)
  Sender: FDA-Public Use
  Company Number: PHMT2006CA01252

PATIENT
  Sex: Male

DRUGS (11)
  1. NITROGLYCERIN [Concomitant]
     Route: 062
  2. SANDOSTATIN LAR [Suspect]
     Dosage: 50 MG EVERY 4 WEEKS
     Route: 030
  3. METOPROLOL SUCCINATE [Concomitant]
  4. SANDOSTATIN LAR [Suspect]
     Indication: CARCINOID TUMOUR
     Dosage: 50 MG, QMO
     Dates: start: 20050202
  5. INDAPAMIDE [Concomitant]
  6. REMERON [Concomitant]
  7. SANDOSTATIN LAR [Suspect]
     Dosage: 30 MG, UNK
     Route: 030
     Dates: end: 20091201
  8. SANDOSTATIN LAR [Suspect]
     Dosage: 60 MG, UNK
  9. FENTANYL CITRATE [Concomitant]
     Route: 062
  10. PRILOSEC [Concomitant]
  11. TIAZAC [Concomitant]

REACTIONS (40)
  - HEADACHE [None]
  - CHOLECYSTITIS [None]
  - NAUSEA [None]
  - GAIT DISTURBANCE [None]
  - WEIGHT DECREASED [None]
  - HYPOTENSION [None]
  - FALL [None]
  - PRURITUS [None]
  - PAIN IN EXTREMITY [None]
  - ARTHRALGIA [None]
  - VOMITING [None]
  - DYSKINESIA [None]
  - LOSS OF CONSCIOUSNESS [None]
  - PAIN [None]
  - WHEEZING [None]
  - INJECTION SITE REACTION [None]
  - RASH PRURITIC [None]
  - SKIN IRRITATION [None]
  - DYSPNOEA [None]
  - BALANCE DISORDER [None]
  - GASTROOESOPHAGEAL REFLUX DISEASE [None]
  - INJECTION SITE HAEMATOMA [None]
  - DIARRHOEA [None]
  - MUSCULOSKELETAL PAIN [None]
  - DIZZINESS [None]
  - SYNCOPE [None]
  - HEART RATE DECREASED [None]
  - CEREBROVASCULAR ACCIDENT [None]
  - FLUSHING [None]
  - HEMIPARESIS [None]
  - ARTERIOSCLEROSIS [None]
  - INJECTION SITE PAIN [None]
  - CHEST PAIN [None]
  - PALPITATIONS [None]
  - BRADYCARDIA [None]
  - ELECTROCARDIOGRAM AMBULATORY [None]
  - HEART RATE IRREGULAR [None]
  - FATIGUE [None]
  - HIATUS HERNIA [None]
  - INJECTION SITE MASS [None]
